FAERS Safety Report 23264836 (Version 1)
Quarter: 2023Q4

REPORT INFORMATION
  Report Type: Report from Study
  Country: US (occurrence: US)
  Receive Date: 20231206
  Receipt Date: 20231206
  Transmission Date: 20240110
  Serious: Yes (Other)
  Sender: FDA-Public Use
  Company Number: US-ABBVIE-5525791

PATIENT
  Sex: Female

DRUGS (2)
  1. RINVOQ [Suspect]
     Active Substance: UPADACITINIB
     Indication: Rheumatoid arthritis
     Dosage: FORM STRENGTH: 15 MILLIGRAMS
     Route: 048
  2. HYALURONIC ACID [Concomitant]
     Active Substance: HYALURONIC ACID
     Indication: Product used for unknown indication
     Dosage: DUROLANE PFS

REACTIONS (1)
  - Surgery [Unknown]
